FAERS Safety Report 4370515-3 (Version None)
Quarter: 2004Q2

REPORT INFORMATION
  Report Type: 
  Country: None (occurrence: None)
  Receive Date: 20040528
  Receipt Date: 20040513
  Transmission Date: 20050107
  Serious: Yes (Hospitalization)
  Sender: FDA-Public Use
  Company Number: DSA_80646_2004

PATIENT
  Age: 76 Year
  Sex: Male
  Weight: 63.5036 kg

DRUGS (11)
  1. XYREM [Suspect]
     Indication: NARCOLEPSY
     Dosage: 8 G NIGHTLY PO
     Route: 048
     Dates: start: 20021201
  2. IMIPRAMINE [Concomitant]
  3. XANAX [Concomitant]
  4. PROVIGIL [Concomitant]
  5. ZOCOR [Concomitant]
  6. K-DUR 10 [Concomitant]
  7. VASOTEC [Concomitant]
  8. TOPROL-XL [Concomitant]
  9. LANOXIN [Concomitant]
  10. ECOTRIN [Concomitant]
  11. FUROSEMIDE [Concomitant]

REACTIONS (3)
  - MELAENA [None]
  - PEPTIC ULCER [None]
  - UPPER GASTROINTESTINAL HAEMORRHAGE [None]
